FAERS Safety Report 8415863-2 (Version None)
Quarter: 2012Q2

REPORT INFORMATION
  Report Type: 
  Country: None (occurrence: None)
  Receive Date: 20120323
  Receipt Date: 20110405
  Transmission Date: 20120825
  Serious: Yes (Other)
  Sender: FDA-Public Use
  Company Number: 163-21880-11040543

PATIENT
  Age: 69 Year
  Sex: Female

DRUGS (3)
  1. REVLIMID [Suspect]
     Indication: MULTIPLE MYELOMA
     Dosage: 15 MG, 1 IN 1 D, PO, 5-15MG, DAILY, PO, 10 MG, 1 IN 1 D, PO
     Route: 048
     Dates: start: 20101101, end: 20100101
  2. REVLIMID [Suspect]
     Indication: MULTIPLE MYELOMA
     Dosage: 15 MG, 1 IN 1 D, PO, 5-15MG, DAILY, PO, 10 MG, 1 IN 1 D, PO
     Route: 048
     Dates: start: 20100801, end: 20100101
  3. REVLIMID [Suspect]
     Indication: MULTIPLE MYELOMA
     Dosage: 15 MG, 1 IN 1 D, PO, 5-15MG, DAILY, PO, 10 MG, 1 IN 1 D, PO
     Route: 048
     Dates: start: 20100901, end: 20100101

REACTIONS (1)
  - HYPERSENSITIVITY [None]
